FAERS Safety Report 7406548-X (Version None)
Quarter: 2011Q2

REPORT INFORMATION
  Report Type: 
  Country: None (occurrence: None)
  Receive Date: 20110411
  Receipt Date: 20110328
  Transmission Date: 20111010
  Serious: Yes (Hospitalization)
  Sender: FDA-Public Use
  Company Number: IE-MEDIMMUNE-MEDI-0012008

PATIENT
  Sex: Male
  Weight: 3.3 kg

DRUGS (4)
  1. IPRATROPIUM BROMIDE [Suspect]
     Indication: BRONCHIOLITIS
  2. FUROSEMIDE [Suspect]
     Route: 048
  3. SYNAGIS [Suspect]
     Route: 030
     Dates: start: 20101228, end: 20110121
  4. SYNAGIS [Suspect]
     Indication: HEART DISEASE CONGENITAL
     Route: 030
     Dates: start: 20101207, end: 20101207

REACTIONS (7)
  - RHINORRHOEA [None]
  - RESPIRATORY SYNCYTIAL VIRUS INFECTION [None]
  - FEELING ABNORMAL [None]
  - ILL-DEFINED DISORDER [None]
  - HYPOPHAGIA [None]
  - COUGH [None]
  - BRONCHIOLITIS [None]
